FAERS Safety Report 15080011 (Version 1)
Quarter: 2018Q2

REPORT INFORMATION
  Report Type: Report from Study
  Country: US (occurrence: US)
  Receive Date: 20180627
  Receipt Date: 20180627
  Transmission Date: 20180711
  Serious: Yes (Other)
  Sender: FDA-Public Use
  Company Number: US-SHIRE-US201812087AA

PATIENT
  Age: 66 Year
  Sex: Female

DRUGS (1)
  1. CUVITRU [Suspect]
     Active Substance: HUMAN IMMUNOGLOBULIN G
     Indication: IMMUNODEFICIENCY COMMON VARIABLE
     Dosage: 6 G, 1X/WEEK
     Route: 058
     Dates: start: 20180308

REACTIONS (4)
  - Migraine [Not Recovered/Not Resolved]
  - Arthralgia [Unknown]
  - Diarrhoea [Not Recovered/Not Resolved]
  - Dizziness [Unknown]

NARRATIVE: CASE EVENT DATE: 20180309
